FAERS Safety Report 24927674 (Version 2)
Quarter: 2025Q1

REPORT INFORMATION
  Report Type: Report from Study
  Country: US (occurrence: US)
  Receive Date: 20250205
  Receipt Date: 20250212
  Transmission Date: 20250409
  Serious: Yes (Other)
  Sender: GLAXOSMITHKLINE
  Company Number: US-GLAXOSMITHKLINE INC-US2025012172

PATIENT

DRUGS (1)
  1. BELIMUMAB [Suspect]
     Active Substance: BELIMUMAB
     Indication: Product used for unknown indication
     Route: 042

REACTIONS (8)
  - Knee arthroplasty [Unknown]
  - Lung neoplasm malignant [Unknown]
  - Pneumonia [Recovered/Resolved]
  - Back disorder [Unknown]
  - Respiratory syncytial virus infection [Recovered/Resolved]
  - COVID-19 [Recovered/Resolved]
  - Breast mass [Unknown]
  - Axillary mass [Unknown]

NARRATIVE: CASE EVENT DATE: 20211101
